FAERS Safety Report 5134970-3 (Version None)
Quarter: 2006Q4

REPORT INFORMATION
  Report Type: 
  Country: None (occurrence: None)
  Receive Date: 20061025
  Receipt Date: 20060920
  Transmission Date: 20070319
  Serious: Yes (Hospitalization)
  Sender: FDA-Public Use
  Company Number: US-BOEHRINGER INGELHEIM PHARMACEUTICALS, INC.-2006-BP-11059BP

PATIENT
  Age: 61 Year
  Sex: Female

DRUGS (1)
  1. FLOMAX [Suspect]
     Indication: DYSURIA
     Route: 048
     Dates: start: 20060829, end: 20060913

REACTIONS (9)
  - BILE DUCT OBSTRUCTION [None]
  - BILE DUCT STONE [None]
  - HAEMATOCRIT DECREASED [None]
  - HAEMOGLOBIN DECREASED [None]
  - HAEMOLYTIC ANAEMIA [None]
  - JAUNDICE [None]
  - RED BLOOD CELL COUNT DECREASED [None]
  - SKIN DISCOLOURATION [None]
  - URINE COLOUR ABNORMAL [None]
